FAERS Safety Report 25006400 (Version 1)
Quarter: 2025Q1

REPORT INFORMATION
  Report Type: Spontaneous
  Country: JP (occurrence: JP)
  Receive Date: 20250224
  Receipt Date: 20250224
  Transmission Date: 20250409
  Serious: Yes (Death, Other)
  Sender: GLAXOSMITHKLINE
  Company Number: JP-GSKJP-JP2024JPN135673AA

PATIENT

DRUGS (9)
  1. DAPRODUSTAT [Suspect]
     Active Substance: DAPRODUSTAT
     Indication: Nephrogenic anaemia
     Dates: start: 202309
  2. DAPRODUSTAT [Suspect]
     Active Substance: DAPRODUSTAT
  3. SULFAMETHOXAZOLE\TRIMETHOPRIM [Concomitant]
     Active Substance: SULFAMETHOXAZOLE\TRIMETHOPRIM
  4. ASPIRIN [Concomitant]
     Active Substance: ASPIRIN
  5. PREDNISOLONE [Concomitant]
     Active Substance: PREDNISOLONE
  6. LANSOPRAZOLE [Concomitant]
     Active Substance: LANSOPRAZOLE
  7. NEORAL [Concomitant]
     Active Substance: CYCLOSPORINE
  8. EVOCALCET [Concomitant]
     Active Substance: EVOCALCET
  9. CARBOCYSTEINE [Concomitant]
     Active Substance: CARBOCYSTEINE

REACTIONS (1)
  - Renal vein thrombosis [Fatal]

NARRATIVE: CASE EVENT DATE: 20240607
